FAERS Safety Report 5143575-X (Version None)
Quarter: 2006Q4

REPORT INFORMATION
  Report Type: 
  Country: None (occurrence: None)
  Receive Date: 20061030
  Receipt Date: 20061016
  Transmission Date: 20070319
  Serious: Yes (Other)
  Sender: FDA-Public Use
  Company Number: 2005102648

PATIENT
  Age: 55 Year
  Sex: Male

DRUGS (6)
  1. VIAGRA [Suspect]
     Indication: ERECTILE DYSFUNCTION
  2. LIPITOR [Concomitant]
  3. ATENOLOL [Concomitant]
  4. LISINOPRIL [Concomitant]
  5. PRILOSEC [Concomitant]
  6. ASPIRIN [Concomitant]

REACTIONS (5)
  - EYE HAEMORRHAGE [None]
  - EYE PAIN [None]
  - HYPERTENSION [None]
  - LACRIMATION INCREASED [None]
  - OPTIC ISCHAEMIC NEUROPATHY [None]
